FAERS Safety Report 6911486-2 (Version None)
Quarter: 2010Q3

REPORT INFORMATION
  Report Type: 
  Country: None (occurrence: None)
  Receive Date: 20100806
  Receipt Date: 20100727
  Transmission Date: 20110219
  Serious: Yes (Other)
  Sender: FDA-Public Use
  Company Number: US-ELI_LILLY_AND_COMPANY-US201007006956

PATIENT
  Age: 80 Year
  Sex: Male

DRUGS (5)
  1. ALIMTA [Suspect]
     Indication: MESOTHELIOMA
     Dosage: 500 MG/M2, UNK
  2. ALIMTA [Suspect]
     Dosage: 500 MG/M2, UNK
     Dates: start: 20100714
  3. DOXORUBICIN HCL [Concomitant]
     Dosage: UNK, UNKNOWN
  4. CISPLATIN [Concomitant]
     Dosage: 75 MG/M2, UNK
  5. CARBOPLATIN [Concomitant]
     Dosage: UNK, UNKNOWN

REACTIONS (3)
  - BLOOD CREATININE INCREASED [None]
  - MUCOSAL INFLAMMATION [None]
  - PLEURAL MESOTHELIOMA MALIGNANT RECURRENT [None]
